FAERS Safety Report 23760612 (Version 2)
Quarter: 2024Q3

REPORT INFORMATION
  Report Type: Spontaneous
  Country: JP (occurrence: JP)
  Receive Date: 20240419
  Receipt Date: 20240712
  Transmission Date: 20241017
  Serious: Yes (Death, Other)
  Sender: TAKEDA
  Company Number: JP-TAKEDA-2024TJP005706

PATIENT
  Age: 0 Year
  Sex: Male
  Weight: 2.7 kg

DRUGS (5)
  1. TEDUGLUTIDE [Suspect]
     Active Substance: TEDUGLUTIDE
     Indication: Short-bowel syndrome
     Dosage: 0.125 MILLIGRAM, QD
     Route: 058
     Dates: start: 20230802, end: 20231105
  2. TEDUGLUTIDE [Suspect]
     Active Substance: TEDUGLUTIDE
     Indication: Short-bowel syndrome
     Dosage: 0.125 MILLIGRAM, QD
     Route: 058
     Dates: start: 20230802, end: 20231105
  3. TEDUGLUTIDE [Suspect]
     Active Substance: TEDUGLUTIDE
     Indication: Short-bowel syndrome
     Dosage: 0.125 MILLIGRAM, QD
     Route: 058
     Dates: start: 20230802, end: 20231105
  4. TEDUGLUTIDE [Suspect]
     Active Substance: TEDUGLUTIDE
     Indication: Short-bowel syndrome
     Dosage: 0.125 MILLIGRAM, QD
     Route: 058
     Dates: start: 20230802, end: 20231105
  5. SOYBEAN OIL [Concomitant]
     Active Substance: SOYBEAN OIL
     Indication: Nutritional supplementation
     Dosage: UNK UNK, QD
     Route: 042
     Dates: start: 20230120, end: 20231214

REACTIONS (11)
  - Coagulopathy [Unknown]
  - Pyrexia [Unknown]
  - Blood pressure decreased [Unknown]
  - Respiration abnormal [Unknown]
  - General physical health deterioration [Unknown]
  - Pulmonary haemorrhage [Unknown]
  - Cardiac dysfunction [Unknown]
  - Cerebral haemorrhage [Unknown]
  - Blood lactic acid increased [Unknown]
  - Blood test abnormal [Unknown]
  - Multiple organ dysfunction syndrome [Fatal]

NARRATIVE: CASE EVENT DATE: 20231104
